FAERS Safety Report 6380540-9 (Version None)
Quarter: 2009Q3

REPORT INFORMATION
  Report Type: 
  Country: None (occurrence: None)
  Receive Date: 20090929
  Receipt Date: 20090921
  Transmission Date: 20100115
  Serious: Yes (Other)
  Sender: FDA-Public Use
  Company Number: US-ASTRAZENECA-2009UW03770

PATIENT
  Age: 41 Year
  Sex: Female
  Weight: 132 kg

DRUGS (2)
  1. SEROQUEL [Suspect]
     Indication: DEPRESSION
     Route: 048
     Dates: start: 20030101, end: 20070801
  2. ABILIFY [Concomitant]
     Dates: start: 20090101

REACTIONS (8)
  - BLOOD CHOLESTEROL INCREASED [None]
  - BLOOD TRIGLYCERIDES INCREASED [None]
  - GASTRIC OPERATION [None]
  - HYPERLIPIDAEMIA [None]
  - OBESITY [None]
  - OESOPHAGOGASTRIC FUNDOPLASTY [None]
  - SLEEP DISORDER [None]
  - TYPE 2 DIABETES MELLITUS [None]
